FAERS Safety Report 20178748 (Version 1)
Quarter: 2021Q4

REPORT INFORMATION
  Report Type: Spontaneous
  Country: US (occurrence: US)
  Receive Date: 20211214
  Receipt Date: 20211214
  Transmission Date: 20220303
  Serious: No
  Sender: FDA-Public Use
  Company Number: US-ALKEM LABORATORIES LIMITED-US-ALKEM-2021-01659

PATIENT
  Sex: Female

DRUGS (2)
  1. ISONIAZID [Suspect]
     Active Substance: ISONIAZID
     Indication: Product used for unknown indication
     Dosage: 300 MILLIGRAM, ONCE
     Route: 065
  2. ISONIAZID [Suspect]
     Active Substance: ISONIAZID
     Dosage: 600 MILLIGRAM, ONCE
     Route: 065

REACTIONS (1)
  - Maternal exposure during breast feeding [Unknown]
